FAERS Safety Report 6860819-4 (Version None)
Quarter: 2010Q3

REPORT INFORMATION
  Report Type: 
  Country: None (occurrence: None)
  Receive Date: 20100720
  Receipt Date: 20100716
  Transmission Date: 20110219
  Serious: Yes (Hospitalization, Other)
  Sender: FDA-Public Use
  Company Number: US-MERCK-1003USA01611

PATIENT
  Age: 63 Year
  Sex: Female
  Weight: 73 kg

DRUGS (9)
  1. FOSAMAX [Suspect]
     Indication: OSTEOPENIA
     Route: 048
     Dates: start: 20051201, end: 20090317
  2. FOSAMAX [Suspect]
     Indication: OSTEOPOROSIS
     Route: 048
     Dates: start: 20051201, end: 20090317
  3. FELDENE [Concomitant]
     Indication: INFLAMMATION
     Route: 065
     Dates: start: 19980101
  4. FELDENE [Concomitant]
     Indication: SPINAL OSTEOARTHRITIS
     Route: 065
     Dates: start: 19980101
  5. ELAVIL [Concomitant]
     Indication: ANTIDEPRESSANT THERAPY
     Route: 048
     Dates: start: 19900101
  6. ELAVIL [Concomitant]
     Indication: SLEEP DISORDER THERAPY
     Route: 048
     Dates: start: 19900101
  7. FLEXERIL [Concomitant]
     Indication: MUSCLE RELAXANT THERAPY
     Route: 048
     Dates: start: 20000101
  8. ALBUTEROL [Concomitant]
     Indication: CHRONIC OBSTRUCTIVE PULMONARY DISEASE
     Route: 065
     Dates: start: 19950101
  9. ADVAIR DISKUS 100/50 [Concomitant]
     Indication: CHRONIC OBSTRUCTIVE PULMONARY DISEASE
     Route: 065
     Dates: start: 20040101

REACTIONS (44)
  - ARTHRALGIA [None]
  - ASTIGMATISM [None]
  - BODY HEIGHT DECREASED [None]
  - BURNING MOUTH SYNDROME [None]
  - CANDIDIASIS [None]
  - CAROTID BRUIT [None]
  - CORNEAL DYSTROPHY [None]
  - CUTIS LAXA [None]
  - DELAYED RECOVERY FROM ANAESTHESIA [None]
  - DENTAL CARIES [None]
  - DIABETIC NEUROPATHY [None]
  - DIZZINESS [None]
  - DRUG INEFFECTIVE [None]
  - DRY MOUTH [None]
  - DYSPNOEA [None]
  - FISTULA [None]
  - GINGIVAL ULCERATION [None]
  - INTERMITTENT CLAUDICATION [None]
  - INTERVERTEBRAL DISC DISORDER [None]
  - INTRAOCULAR LENS IMPLANT [None]
  - LEUKOPLAKIA ORAL [None]
  - LICHEN PLANUS [None]
  - MOUTH HAEMORRHAGE [None]
  - MUSCLE SPASMS [None]
  - MUSCULAR WEAKNESS [None]
  - MUSCULOSKELETAL PAIN [None]
  - MYALGIA [None]
  - NASOPHARYNGITIS [None]
  - ORAL INFECTION [None]
  - OSTEOMYELITIS [None]
  - OSTEONECROSIS OF JAW [None]
  - OSTEOPOROSIS [None]
  - PAIN IN JAW [None]
  - PAROTITIS [None]
  - PEPTIC ULCER [None]
  - PERIPHERAL ARTERIAL OCCLUSIVE DISEASE [None]
  - PRODUCTIVE COUGH [None]
  - SCIATICA [None]
  - SINUSITIS [None]
  - SPINAL OSTEOARTHRITIS [None]
  - SUBCLAVIAN STEAL SYNDROME [None]
  - TOOTH DISORDER [None]
  - URINARY TRACT INFECTION [None]
  - VITAMIN B12 DEFICIENCY [None]
